FAERS Safety Report 7134934-4 (Version None)
Quarter: 2010Q4

REPORT INFORMATION
  Report Type: 
  Country: None (occurrence: None)
  Receive Date: 20101203
  Receipt Date: 20101124
  Transmission Date: 20110411
  Serious: Yes (Hospitalization)
  Sender: FDA-Public Use
  Company Number: US-JNJFOC-20100300885

PATIENT
  Sex: Male
  Weight: 44.9 kg

DRUGS (17)
  1. INFLIXIMAB [Suspect]
     Indication: CROHN'S DISEASE
     Route: 042
  2. INFLIXIMAB [Suspect]
     Route: 042
  3. GROWTH HORMONE [Concomitant]
  4. HUMIRA [Concomitant]
  5. PREDNISONE [Concomitant]
  6. ADAPALENE [Concomitant]
  7. LETROZOLE [Concomitant]
  8. OMEPRAZOLE [Concomitant]
  9. EPINEPHRINE [Concomitant]
  10. LEVOTHYROXINE SODIUM [Concomitant]
  11. CLINDAMYCIN [Concomitant]
  12. FERROUS SULFATE [Concomitant]
  13. MULTI-VITAMINS [Concomitant]
  14. CALCIUM CARBONATE  VITAMIN D [Concomitant]
  15. FLORAJEN [Concomitant]
  16. OXANDROLONE [Concomitant]
  17. PROBIOTICS [Concomitant]

REACTIONS (3)
  - ANAL FISTULA [None]
  - CROHN'S DISEASE [None]
  - PERIRECTAL ABSCESS [None]
